FAERS Safety Report 4521366-8 (Version None)
Quarter: 2004Q4

REPORT INFORMATION
  Report Type: 
  Country: None (occurrence: None)
  Receive Date: 20041208
  Receipt Date: 20041201
  Transmission Date: 20050328
  Serious: Yes (Hospitalization)
  Sender: FDA-Public Use
  Company Number: GB-MERCK-0412GBR00015

PATIENT
  Age: 56 Year
  Sex: Female

DRUGS (9)
  1. FOSAMAX [Suspect]
     Indication: OSTEOPOROSIS
     Route: 048
     Dates: end: 20041108
  2. DICLOFENAC [Suspect]
     Route: 048
     Dates: end: 20041108
  3. TROSPIUM CHLORIDE [Concomitant]
     Indication: INCONTINENCE
     Route: 048
  4. GABAPENTIN [Concomitant]
     Route: 048
  5. OLANZAPINE [Concomitant]
     Route: 048
  6. LEVOTHYROXINE SODIUM [Concomitant]
     Indication: HYPOTHYROIDISM
     Route: 048
  7. COD LIVER OIL [Concomitant]
     Route: 048
  8. ACETAMINOPHEN AND PROPOXYPHENE HYDROCHLORIDE [Concomitant]
     Route: 065
  9. ALUMINUM HYDROXIDE AND MAGNESIUM TRISILICATE [Concomitant]
     Route: 065

REACTIONS (4)
  - HAEMATEMESIS [None]
  - OESOPHAGITIS [None]
  - OESOPHAGITIS ULCERATIVE [None]
  - ULCER [None]
